FAERS Safety Report 7457389-9 (Version None)
Quarter: 2011Q2

REPORT INFORMATION
  Report Type: 
  Country: None (occurrence: None)
  Receive Date: 20110502
  Receipt Date: 20110502
  Transmission Date: 20111010
  Serious: Yes (Disabling)
  Sender: FDA-Public Use
  Company Number: None

PATIENT
  Age: 86 Year
  Sex: Female
  Weight: 60.782 kg

DRUGS (1)
  1. PRODAXA 150MG BOEHRINGER [Suspect]
     Indication: ATRIAL FIBRILLATION
     Dosage: ONE CAPSULE TWICE A DAY
     Dates: start: 20101212, end: 20110501

REACTIONS (1)
  - ALOPECIA [None]
